FAERS Safety Report 5541514-0 (Version None)
Quarter: 2007Q4

REPORT INFORMATION
  Report Type: 
  Country: None (occurrence: None)
  Receive Date: 20071210
  Receipt Date: 20071129
  Transmission Date: 20080405
  Serious: Yes (Hospitalization)
  Sender: FDA-Public Use
  Company Number: PHBS2007JP12813

PATIENT
  Age: 26 Year
  Sex: Male
  Weight: 100 kg

DRUGS (10)
  1. SANDOSTATIN LAR [Suspect]
     Indication: GROWTH HORMONE-PRODUCING PITUITARY TUMOUR
     Dosage: 20 MG, ONCE/SINGLE
     Route: 058
     Dates: start: 20061114, end: 20061114
  2. SANDOSTATIN LAR [Suspect]
     Dosage: 20 MG, ONCE/SINGLE
     Route: 058
     Dates: start: 20061212, end: 20061212
  3. SANDOSTATIN LAR [Suspect]
     Dosage: 20 MG, ONCE/SINGLE
     Route: 058
     Dates: start: 20070115, end: 20070115
  4. SANDOSTATIN LAR [Suspect]
     Dosage: 20 MG, ONCE/SINGLE
     Route: 058
     Dates: start: 20070215, end: 20070215
  5. CABERGOLINE [Suspect]
     Indication: PITUITARY TUMOUR
     Dosage: 0.25 MG/D
     Route: 048
     Dates: start: 20060201
  6. THYRADIN [Suspect]
     Dosage: 0.25 UG/D
     Route: 048
     Dates: start: 20060307
  7. INSULIN [Concomitant]
     Dosage: 30 IU/D
     Route: 058
     Dates: start: 20060420
  8. INSULIN [Concomitant]
     Dosage: 115 IU/D
     Route: 058
  9. INSULIN [Concomitant]
     Dosage: 52 IU/D
     Route: 058
  10. INSULIN [Concomitant]
     Dosage: 33 IU/D
     Route: 058

REACTIONS (7)
  - BLOOD GLUCOSE INCREASED [None]
  - DIABETIC KETOACIDOSIS [None]
  - GLYCOSYLATED HAEMOGLOBIN INCREASED [None]
  - HYPERGLYCAEMIA [None]
  - INSULIN RESISTANCE [None]
  - MALAISE [None]
  - URINE KETONE BODY PRESENT [None]
